FAERS Safety Report 25156792 (Version 1)
Quarter: 2025Q2

REPORT INFORMATION
  Report Type: Spontaneous
  Country: US (occurrence: US)
  Receive Date: 20250403
  Receipt Date: 20250403
  Transmission Date: 20250717
  Serious: Yes (Death, Hospitalization)
  Sender: JOHNSON AND JOHNSON
  Company Number: US-JNJFOC-20250382209

PATIENT

DRUGS (1)
  1. CILTACABTAGENE AUTOLEUCEL [Suspect]
     Active Substance: CILTACABTAGENE AUTOLEUCEL
     Indication: Plasma cell myeloma refractory
     Route: 065

REACTIONS (8)
  - Cardiotoxicity [Fatal]
  - Ventricular arrhythmia [Unknown]
  - Acute coronary syndrome [Unknown]
  - Cardiac failure [Unknown]
  - Cytokine release syndrome [Unknown]
  - Atrial fibrillation [Unknown]
  - Hypotension [Unknown]
  - Adverse event [Unknown]
